FAERS Safety Report 7916819-6 (Version None)
Quarter: 2011Q4

REPORT INFORMATION
  Report Type: 
  Country: None (occurrence: None)
  Receive Date: 20111114
  Receipt Date: 20111031
  Transmission Date: 20120403
  Serious: Yes (Hospitalization)
  Sender: FDA-Public Use
  Company Number: TCI2011A05842

PATIENT
  Age: 94 Year
  Sex: Female

DRUGS (4)
  1. ALPRAZOLAM [Suspect]
     Dosage: PER ORAL
  2. (CHINESE HERBAL MEDICINE) [Suspect]
  3. ROZEREM [Suspect]
     Indication: INITIAL INSOMNIA
     Dosage: PER ORAL
     Route: 048
     Dates: start: 20100801, end: 20111001
  4. ANTIHYPERTENSIVES [Suspect]

REACTIONS (1)
  - ALTERED STATE OF CONSCIOUSNESS [None]
